FAERS Safety Report 20056759 (Version 1)
Quarter: 2021Q4

REPORT INFORMATION
  Report Type: Spontaneous
  Country: SE (occurrence: SE)
  Receive Date: 20211111
  Receipt Date: 20211111
  Transmission Date: 20220303
  Serious: Yes (Disabling)
  Sender: FDA-Public Use
  Company Number: None

PATIENT
  Age: 54 Year
  Sex: Female
  Weight: 75 kg

DRUGS (2)
  1. MOMETASONE FUROATE [Suspect]
     Active Substance: MOMETASONE FUROATE
     Dosage: STRENGTH 50 MICROGRAM/DOSE, DOSAGE 2 DOSES 1-2 TIMES (PER) DAY
     Route: 045
     Dates: start: 20200618, end: 20210714
  2. COMIRNATY [Suspect]
     Active Substance: TOZINAMERAN
     Dosage: DOS : 1 (CONCENTRATE FOR DISPERSION FOR INJECTION)
     Dates: start: 20210614

REACTIONS (2)
  - Deafness unilateral [Recovered/Resolved with Sequelae]
  - Tinnitus [Not Recovered/Not Resolved]

NARRATIVE: CASE EVENT DATE: 20210629
